FAERS Safety Report 5129502-X (Version None)
Quarter: 2006Q4

REPORT INFORMATION
  Report Type: 
  Country: None (occurrence: None)
  Receive Date: 20061018
  Receipt Date: 20061006
  Transmission Date: 20070319
  Serious: Yes (Other)
  Sender: FDA-Public Use
  Company Number: GB-PURDUE-GBR_2006_0002512

PATIENT
  Sex: Male

DRUGS (4)
  1. MST CONTINUS TABLETS [Suspect]
     Indication: BONE PAIN
     Dosage: UNK, PRN
     Route: 065
  2. DICONAL [Concomitant]
     Indication: BACK PAIN
     Route: 065
  3. DIHYDROCODEINE BITARTRATE INJ [Concomitant]
     Indication: BACK PAIN
     Route: 065
  4. DIAZEPAM [Concomitant]
     Indication: MUSCLE SPASMS
     Dosage: 30 MG, UNK
     Route: 065

REACTIONS (4)
  - ANOREXIA [None]
  - BEDRIDDEN [None]
  - INSOMNIA [None]
  - THIRST DECREASED [None]
